FAERS Safety Report 15314392 (Version 1)
Quarter: 2018Q3

REPORT INFORMATION
  Report Type: Spontaneous
  Country: AU (occurrence: AU)
  Receive Date: 20180824
  Receipt Date: 20180824
  Transmission Date: 20181010
  Serious: Yes (Death, Other)
  Sender: FDA-Public Use
  Company Number: AU-ALKEM LABORATORIES LIMITED-AU-ALKEM-2018-06761

PATIENT
  Age: 41 Year
  Sex: Male
  Weight: 73 kg

DRUGS (2)
  1. CAPECITABINE. [Suspect]
     Active Substance: CAPECITABINE
     Dosage: UNK (LOW DOSE IN 2 TO 4 CHEMOTHERAPY CYCLE)
     Route: 065
  2. CAPECITABINE. [Suspect]
     Active Substance: CAPECITABINE
     Indication: COLON CANCER STAGE III
     Dosage: UNK (FIRST CHEMOTHERAPY CYCLE)
     Route: 065

REACTIONS (5)
  - Death [Fatal]
  - Colitis [Unknown]
  - Disease progression [Unknown]
  - Toxicity to various agents [Unknown]
  - Metastasis [Unknown]
